FAERS Safety Report 17122307 (Version 2)
Quarter: 2020Q1

REPORT INFORMATION
  Report Type: Spontaneous
  Country: DE (occurrence: DE)
  Receive Date: 20191206
  Receipt Date: 20200212
  Transmission Date: 20200409
  Serious: Yes (Hospitalization, Other)
  Sender: FDA-Public Use
  Company Number: DE-PFIZER INC-2019522059

PATIENT
  Sex: Female
  Weight: 90 kg

DRUGS (37)
  1. PACLITAXEL. [Suspect]
     Active Substance: PACLITAXEL
     Dosage: 80 MG/M2, ONCE/SINGLE
     Dates: start: 20190529
  2. SELENE [SELENIUM;TOCOPHERYL ACETATE] [Concomitant]
     Dosage: 1 DF, QD (MORNING)
  3. METAMIZOLE [Concomitant]
     Active Substance: METAMIZOLE
     Indication: PAIN
     Dosage: 30 DROPS OF SOLUTION WITH 500 MG/ML, UP TO 4 TIMES PRN
  4. PANTOPRAZOLE [Concomitant]
     Active Substance: PANTOPRAZOLE
     Dosage: 20 MG, 1X/DAY (DAILY MORNINGS)
     Dates: start: 201412, end: 201905
  5. TELMISARTAN. [Concomitant]
     Active Substance: TELMISARTAN
     Dosage: 40 MG, AS NEEDED
  6. CLOPIDOGREL [Concomitant]
     Active Substance: CLOPIDOGREL BISULFATE
     Dosage: UNK
     Dates: start: 201707, end: 201808
  7. CYCLOPHOSPHAMIDE. [Suspect]
     Active Substance: CYCLOPHOSPHAMIDE
     Dosage: 600 MG/M2, ONCE/SINGLE
     Dates: start: 20190321
  8. PACLITAXEL. [Suspect]
     Active Substance: PACLITAXEL
     Dosage: 80 MG/M2, ONCE/SINGLE
     Dates: start: 20190522
  9. PACLITAXEL. [Suspect]
     Active Substance: PACLITAXEL
     Dosage: 80 MG/M2, ONCE/SINGLE
     Dates: start: 20190621
  10. PACLITAXEL. [Suspect]
     Active Substance: PACLITAXEL
     Dosage: 80 MG/M2, ONCE/SINGLE
     Dates: start: 20190704
  11. TELMISARTAN. [Concomitant]
     Active Substance: TELMISARTAN
     Indication: HYPERTENSION
     Dosage: 80 MG, QD (IN EVENING)
     Dates: start: 201804
  12. LEVOTHYROXINE. [Concomitant]
     Active Substance: LEVOTHYROXINE
     Dosage: 150 UG, QD (MORNING)
  13. ATORVASTATIN [Concomitant]
     Active Substance: ATORVASTATIN
     Dosage: 80 MG, QD (IN EVENING)
  14. CYCLOPHOSPHAMIDE. [Suspect]
     Active Substance: CYCLOPHOSPHAMIDE
     Indication: BREAST CANCER
     Dosage: 600 MG/M2, ONCE/SINGLE
     Dates: start: 20190207
  15. CYCLOPHOSPHAMIDE. [Suspect]
     Active Substance: CYCLOPHOSPHAMIDE
     Dosage: 600 MG/M2, ONCE/SINGLE
     Dates: start: 20190228
  16. PACLITAXEL. [Suspect]
     Active Substance: PACLITAXEL
     Dosage: 80 MG/M2, ONCE/SINGLE
     Dates: start: 20190614
  17. VALSARTAN. [Suspect]
     Active Substance: VALSARTAN
     Indication: HYPERTENSION
     Dosage: 80 MG, QD (IN EVENING)
     Dates: start: 201412, end: 201804
  18. MONTELUKAST [Concomitant]
     Active Substance: MONTELUKAST SODIUM
     Dosage: 20 MG, QD (EVENING)
  19. DICLOFENAC [Suspect]
     Active Substance: DICLOFENAC
     Dosage: UNK
  20. CALCIUM [Concomitant]
     Active Substance: CALCIUM
     Dosage: 500 MG, QD (MORNING)
  21. CHOLECALCIFEROL [Concomitant]
     Active Substance: CHOLECALCIFEROL
     Dosage: 1000 IU, QD (MORNING)
  22. MAGNESIUM [Concomitant]
     Active Substance: MAGNESIUM
     Dosage: 5 MMOL/5G, QD (MAGNESIUM ION, BAG)
  23. BISOPROLOL [Concomitant]
     Active Substance: BISOPROLOL
     Dosage: 2.5 MG, 2X/DAY (MORNING AND EVENING)
  24. CYCLOPHOSPHAMIDE. [Suspect]
     Active Substance: CYCLOPHOSPHAMIDE
     Dosage: 600 MG/M2, ONCE/SINGLE
     Dates: start: 20190411
  25. BISOPROLOL [Concomitant]
     Active Substance: BISOPROLOL
     Dosage: 2.5 MG, QD (AT NOON)
     Dates: start: 201707, end: 201905
  26. ASPIRIN. [Concomitant]
     Active Substance: ASPIRIN
     Dosage: 100 MG, UNK
     Dates: start: 201412, end: 201905
  27. IBUPROFEN. [Concomitant]
     Active Substance: IBUPROFEN
     Dosage: 400 MG, AS NEEDED
  28. EPIRUBICIN HCL [Suspect]
     Active Substance: EPIRUBICIN HYDROCHLORIDE
     Indication: BREAST CANCER
     Dosage: 90 MG/M2, ONCE/SINGLE
     Dates: start: 20190207
  29. EPIRUBICIN HCL [Suspect]
     Active Substance: EPIRUBICIN HYDROCHLORIDE
     Dosage: 90 MG/M2, ONCE/SINGLE
     Route: 065
     Dates: start: 20190321
  30. EPIRUBICIN HCL [Suspect]
     Active Substance: EPIRUBICIN HYDROCHLORIDE
     Dosage: 90 MG/M2, ONCE/SINGLE
     Dates: start: 20190411
  31. PACLITAXEL. [Suspect]
     Active Substance: PACLITAXEL
     Indication: BREAST CANCER
     Dosage: 80 MG/M2, ONCE/SINGLE
     Dates: start: 20190516
  32. PACLITAXEL. [Suspect]
     Active Substance: PACLITAXEL
     Dosage: 80 MG/M2, ONCE/SINGLE
     Dates: start: 20190607
  33. PACLITAXEL. [Suspect]
     Active Substance: PACLITAXEL
     Dosage: 80 MG/M2, ONCE/SINGLE
     Dates: start: 20190711, end: 20190711
  34. PANTOZLE [Concomitant]
     Active Substance: PANTOPRAZOLE SODIUM
     Dosage: 20 MG, QD (MORNING)
  35. JODID [Concomitant]
     Active Substance: IODINE
     Dosage: 200 MG, QD (MORNING)
  36. CRATAEGUTT [Concomitant]
     Dosage: 450 MG, UNK
     Dates: start: 201607, end: 201905
  37. EPIRUBICIN HCL [Suspect]
     Active Substance: EPIRUBICIN HYDROCHLORIDE
     Dosage: 90 MG/M2, ONCE/SINGLE
     Dates: start: 20190228

REACTIONS (24)
  - Asthenia [Unknown]
  - Pericardial effusion [Unknown]
  - Neoplasm progression [Not Recovered/Not Resolved]
  - Cough [Unknown]
  - Immunodeficiency [Unknown]
  - Pleural effusion [Unknown]
  - Pulmonary embolism [Unknown]
  - Leukopenia [Unknown]
  - Cardiac failure [Unknown]
  - Acute myocardial infarction [Unknown]
  - Fatigue [Unknown]
  - Hepatic steatosis [Unknown]
  - Respiratory failure [Unknown]
  - Dyspnoea exertional [Unknown]
  - Pulmonary oedema [Unknown]
  - Polyneuropathy [Unknown]
  - Eczema [Unknown]
  - Chest discomfort [Unknown]
  - Pneumonia [Unknown]
  - Blood pressure increased [Unknown]
  - Ejection fraction decreased [Unknown]
  - Carotid arteriosclerosis [Unknown]
  - Haematoma [Unknown]
  - Hypotension [Unknown]

NARRATIVE: CASE EVENT DATE: 2017
